FAERS Safety Report 7458929-6 (Version None)
Quarter: 2011Q2

REPORT INFORMATION
  Report Type: 
  Country: None (occurrence: None)
  Receive Date: 20110504
  Receipt Date: 20110426
  Transmission Date: 20111010
  Serious: Yes (Hospitalization)
  Sender: FDA-Public Use
  Company Number: JP-ASTRAZENECA-2010SE48190

PATIENT
  Sex: Male

DRUGS (2)
  1. RENIVACE [Concomitant]
     Indication: HYPERTENSION
     Route: 048
  2. ECARD HD [Suspect]
     Indication: HYPERTENSION
     Dosage: 1 DF EVERY DAY
     Route: 048
     Dates: start: 20100914, end: 20101006

REACTIONS (2)
  - DEHYDRATION [None]
  - ACUTE PRERENAL FAILURE [None]
